FAERS Safety Report 4520447-2 (Version None)
Quarter: 2004Q4

REPORT INFORMATION
  Report Type: 
  Country: None (occurrence: None)
  Receive Date: 20041203
  Receipt Date: 20041115
  Transmission Date: 20050328
  Serious: Yes (Hospitalization)
  Sender: FDA-Public Use
  Company Number: 2004-BP-11825RO

PATIENT
  Age: 51 Year
  Sex: Female
  Weight: 81.6 kg

DRUGS (5)
  1. LITHIUM CARBONATE [Suspect]
     Indication: BIPOLAR DISORDER
     Dosage: 1500 MG QHS (300 MG, 5 IN 1 D), PO
     Route: 048
     Dates: start: 20040101
  2. SEROQUEL [Concomitant]
  3. SYNTHROID [Concomitant]
  4. IRON (IRON) [Concomitant]
  5. MULTIVITAMIN [Concomitant]

REACTIONS (3)
  - DRUG LEVEL DECREASED [None]
  - MANIA [None]
  - PHARMACEUTICAL PRODUCT COMPLAINT [None]
